FAERS Safety Report 16241729 (Version 4)
Quarter: 2019Q4

REPORT INFORMATION
  Report Type: Report from Study
  Country: PL (occurrence: PL)
  Receive Date: 20190426
  Receipt Date: 20191030
  Transmission Date: 20200122
  Serious: Yes (Hospitalization)
  Sender: FDA-Public Use
  Company Number: PL-ROCHE-2301402

PATIENT
  Age: 72 Year
  Sex: Female
  Weight: 69 kg

DRUGS (15)
  1. COBIMETINIB. [Suspect]
     Active Substance: COBIMETINIB
     Indication: MALIGNANT MELANOMA
     Dosage: MOST RECENT DOSE PRIOR TO EVENT ONSET ON 08/APR/2019 (60 MG)
     Route: 048
     Dates: start: 20180821
  2. DALACIN T [Concomitant]
     Active Substance: CLINDAMYCIN PHOSPHATE
     Indication: RASH
     Route: 061
     Dates: start: 20181214
  3. ACCORDEON [Concomitant]
     Route: 048
     Dates: start: 20190409, end: 20190413
  4. KALIPOZ [Concomitant]
     Active Substance: POTASSIUM CHLORIDE
     Route: 048
     Dates: start: 20190410, end: 20190418
  5. ENCORTON [PREDNISONE] [Concomitant]
     Active Substance: PREDNISONE
     Route: 048
     Dates: start: 20190307, end: 20190318
  6. ENCORTON [PREDNISONE] [Concomitant]
     Active Substance: PREDNISONE
     Route: 048
     Dates: start: 20190401, end: 20190408
  7. ENCORTON [PREDNISONE] [Concomitant]
     Active Substance: PREDNISONE
     Route: 048
     Dates: start: 20190410, end: 20190413
  8. ACCORDEON [Concomitant]
     Route: 048
     Dates: start: 20190414, end: 20190419
  9. FLUCONAZOLE. [Concomitant]
     Active Substance: FLUCONAZOLE
     Route: 065
     Dates: start: 20190412, end: 20190419
  10. FUROSEMID [FUROSEMIDE] [Concomitant]
     Active Substance: FUROSEMIDE
     Route: 042
     Dates: start: 20190409, end: 20190419
  11. ENCORTON [PREDNISONE] [Concomitant]
     Active Substance: PREDNISONE
     Route: 048
     Dates: start: 20190322, end: 20190331
  12. ENCORTON [PREDNISONE] [Concomitant]
     Active Substance: PREDNISONE
     Route: 048
     Dates: start: 20190409, end: 20190409
  13. ATEZOLIZUMAB. [Suspect]
     Active Substance: ATEZOLIZUMAB
     Indication: MALIGNANT MELANOMA
     Dosage: MOST RECENT DOSE PRIOR TO EVENT ONSET ON 19/FEB/2019
     Route: 041
     Dates: start: 20180821
  14. ENCORTON [PREDNISONE] [Concomitant]
     Active Substance: PREDNISONE
     Route: 048
     Dates: start: 20181016
  15. ENCORTON [PREDNISONE] [Concomitant]
     Active Substance: PREDNISONE
     Route: 048
     Dates: start: 20190319, end: 20190321

REACTIONS (1)
  - Visual impairment [Not Recovered/Not Resolved]

NARRATIVE: CASE EVENT DATE: 20190402
